FAERS Safety Report 6228545-2 (Version None)
Quarter: 2009Q2

REPORT INFORMATION
  Report Type: 
  Country: None (occurrence: None)
  Receive Date: 20090612
  Receipt Date: 20090604
  Transmission Date: 20091009
  Serious: Yes (Hospitalization, Other)
  Sender: FDA-Public Use
  Company Number: PHHY2008AT31943

PATIENT
  Sex: Male
  Weight: 76 kg

DRUGS (3)
  1. EXELON [Suspect]
     Indication: DEMENTIA
     Dosage: 4.6 MG/24 HOUR
  2. STALEVO 100 [Concomitant]
     Indication: PARKINSON'S DISEASE
     Dosage: 4X 150 MG DAILY
     Route: 048
  3. PANTOPRAZOLE SODIUM [Concomitant]
     Indication: ULCER
     Route: 048

REACTIONS (3)
  - BRAIN NEOPLASM [None]
  - CLONUS [None]
  - PARTIAL SEIZURES [None]
